FAERS Safety Report 18109997 (Version 4)
Quarter: 2020Q4

REPORT INFORMATION
  Report Type: Report from Study
  Country: PL (occurrence: PL)
  Receive Date: 20200804
  Receipt Date: 20201009
  Transmission Date: 20210113
  Serious: No
  Sender: FDA-Public Use
  Company Number: PL-REGENERON PHARMACEUTICALS, INC.-2020-51808

PATIENT

DRUGS (8)
  1. NIMESULIDE [Concomitant]
     Active Substance: NIMESULIDE
     Indication: CERVIX CARCINOMA
     Dosage: 100 MG, BID
     Route: 048
     Dates: start: 20190814
  2. CEMIPLIMAB [Suspect]
     Active Substance: CEMIPLIMAB
     Indication: CERVIX CARCINOMA
     Dosage: 350 MG, Q3W
     Route: 042
     Dates: start: 20190814
  3. PARACETAMOL [Concomitant]
     Active Substance: ACETAMINOPHEN
     Indication: CERVIX CARCINOMA
     Dosage: 500 MG, INTERMITTENT
     Route: 048
  4. METOPROLOL TARTRATE. [Concomitant]
     Active Substance: METOPROLOL TARTRATE
     Indication: ADVERSE EVENT
     Dosage: 25 MG, SINGLE
     Route: 048
     Dates: start: 20190814, end: 20190814
  5. ENOXAPARIN SODIUM. [Concomitant]
     Active Substance: ENOXAPARIN SODIUM
     Indication: CERVIX CARCINOMA
     Dosage: 80 MG, QD
     Route: 058
  6. HYDROXYZINE HYDROCHLORIDE. [Concomitant]
     Active Substance: HYDROXYZINE HYDROCHLORIDE
     Indication: ADVERSE EVENT
     Dosage: 25 MG, SINGLE
     Route: 048
     Dates: start: 20190814, end: 20190814
  7. TRAMADOL HYDROCHLORIDE AND PARACETAMOL [Concomitant]
     Active Substance: ACETAMINOPHEN\TRAMADOL HYDROCHLORIDE
     Indication: CERVIX CARCINOMA
     Dosage: 37.5/325 MG, INTERMITTENT
     Route: 048
  8. IRON PROTEINSUCCINYLATE [Concomitant]
     Indication: ADVERSE EVENT
     Dosage: 40 MG, QD
     Route: 048
     Dates: start: 20190814, end: 20190902

REACTIONS (1)
  - Anaemia [Recovered/Resolved]

NARRATIVE: CASE EVENT DATE: 20190827
